FAERS Safety Report 8496848-7 (Version None)
Quarter: 2012Q3

REPORT INFORMATION
  Report Type: 
  Country: None (occurrence: None)
  Receive Date: 20120709
  Receipt Date: 20120628
  Transmission Date: 20120928
  Serious: Yes (Hospitalization)
  Sender: FDA-Public Use
  Company Number: CA-ELI_LILLY_AND_COMPANY-CA201207000584

PATIENT
  Age: 88 Year
  Sex: Female

DRUGS (6)
  1. LIPITOR [Concomitant]
  2. ASPIRIN [Concomitant]
  3. FORTEO [Suspect]
     Indication: OSTEOPOROSIS
     Dosage: 20 UG, QD
     Route: 058
     Dates: start: 20091123
  4. FORTEO [Suspect]
     Dosage: 20 UG, QD
     Route: 058
  5. MULTI-VITAMIN [Concomitant]
  6. CALCIUM [Concomitant]

REACTIONS (4)
  - MALAISE [None]
  - CONSTIPATION [None]
  - DEHYDRATION [None]
  - BLOOD CALCIUM INCREASED [None]
